FAERS Safety Report 9852546 (Version 1)
Quarter: 2013Q4

REPORT INFORMATION
  Report Type: Spontaneous
  Country: US (occurrence: None)
  Receive Date: 20131226
  Receipt Date: 20131226
  Transmission Date: 20140711
  Serious: Yes (Other)
  Sender: FDA-Public Use
  Company Number: PHEH2012US025623

PATIENT
  Sex: Female

DRUGS (1)
  1. GILENYA (FINGOLIMOD) CAPSULE, 0.5MG [Suspect]
     Indication: MULTIPLE SCLEROSIS
     Route: 048

REACTIONS (6)
  - Nasal congestion [None]
  - Sneezing [None]
  - Pyrexia [None]
  - Nasopharyngitis [None]
  - Influenza [None]
  - Cough [None]
